FAERS Safety Report 7558293-8 (Version None)
Quarter: 2011Q2

REPORT INFORMATION
  Report Type: 
  Country: None (occurrence: None)
  Receive Date: 20110620
  Receipt Date: 20110610
  Transmission Date: 20111010
  Serious: Yes (Other)
  Sender: FDA-Public Use
  Company Number: US-ASTRAZENECA-2011SE35888

PATIENT
  Age: 20096 Day
  Sex: Male

DRUGS (11)
  1. LORCET-HD [Concomitant]
  2. FLEXERIL [Concomitant]
  3. ULTRAM [Concomitant]
  4. SYMBICORT [Suspect]
     Dosage: 160/4.5 UNKNOWN
     Route: 055
  5. COREG [Concomitant]
  6. CHOLESTYAMINE [Concomitant]
  7. ZOCOR [Concomitant]
  8. PLAVIX [Concomitant]
  9. PROVENTIL [Concomitant]
  10. NITROSTAT [Concomitant]
  11. ASPIRIN [Concomitant]

REACTIONS (3)
  - IMPAIRED WORK ABILITY [None]
  - CATHETERISATION CARDIAC [None]
  - MYOCARDIAL INFARCTION [None]
